FAERS Safety Report 8374302-0 (Version None)
Quarter: 2012Q2

REPORT INFORMATION
  Report Type: 
  Country: None (occurrence: None)
  Receive Date: 20120521
  Receipt Date: 20120514
  Transmission Date: 20120825
  Serious: Yes (Hospitalization, Other)
  Sender: FDA-Public Use
  Company Number: PHHY2012DE027952

PATIENT
  Sex: Female

DRUGS (1)
  1. GILENYA [Suspect]
     Indication: MULTIPLE SCLEROSIS
     Dosage: 0.5 MG, QD
     Route: 048
     Dates: start: 20111101

REACTIONS (13)
  - MUSCLE TWITCHING [None]
  - AMNESIA [None]
  - CENTRAL NERVOUS SYSTEM LESION [None]
  - DIZZINESS [None]
  - HYPOTHYROIDISM [None]
  - NAUSEA [None]
  - HEPATIC ENZYME INCREASED [None]
  - ALTERED STATE OF CONSCIOUSNESS [None]
  - FALL [None]
  - HEAD INJURY [None]
  - CONVULSION [None]
  - TONGUE BITING [None]
  - SENSORY DISTURBANCE [None]
